FAERS Safety Report 9768917 (Version 4)
Quarter: 2014Q1

REPORT INFORMATION
  Report Type: Spontaneous
  Country: GB (occurrence: None)
  Receive Date: 20131216
  Receipt Date: 20140318
  Transmission Date: 20141002
  Serious: Yes (Hospitalization, Other)
  Sender: FDA-Public Use
  Company Number: AUR-APL-2013-10362

PATIENT
  Sex: Female

DRUGS (3)
  1. SIMVASTATIN [Suspect]
     Indication: HYPERCHOLESTEROLAEMIA
  2. DIOVAN (VALSARTAN) [Concomitant]
  3. THYROXINE (LEVOTHYROXINE SODIUM) [Concomitant]

REACTIONS (10)
  - Depression [None]
  - Insomnia [None]
  - Neck pain [None]
  - Movement disorder [None]
  - Nuchal rigidity [None]
  - Myalgia [None]
  - Visual impairment [None]
  - General physical health deterioration [None]
  - Bladder cancer [None]
  - Memory impairment [None]
